FAERS Safety Report 4892788-0 (Version None)
Quarter: 2005Q4

REPORT INFORMATION
  Report Type: 
  Country: None (occurrence: None)
  Receive Date: 20051220
  Receipt Date: 20050901
  Transmission Date: 20060501
  Serious: Yes (Other)
  Sender: FDA-Public Use
  Company Number: 416606

PATIENT
  Sex: Female

DRUGS (1)
  1. BONIVA [Suspect]
     Dosage: ORAL
     Route: 048
     Dates: start: 20050827, end: 20050827

REACTIONS (8)
  - CHEST PAIN [None]
  - DIARRHOEA [None]
  - FINGER DEFORMITY [None]
  - HYPOAESTHESIA [None]
  - OEDEMA PERIPHERAL [None]
  - OSTEOARTHRITIS [None]
  - PAIN IN EXTREMITY [None]
  - PARAESTHESIA [None]
